FAERS Safety Report 16568882 (Version 1)
Quarter: 2019Q3

REPORT INFORMATION
  Report Type: Spontaneous
  Country: ES (occurrence: ES)
  Receive Date: 20190713
  Receipt Date: 20190713
  Transmission Date: 20191004
  Serious: Yes (Death)
  Sender: FDA-Public Use
  Company Number: ES-TEVA-2019-ES-1076949

PATIENT
  Age: 90 Year
  Sex: Female

DRUGS (2)
  1. CIPROFLOXACINO (2049A) [Suspect]
     Active Substance: CIPROFLOXACIN
     Indication: WOUND INFECTION
     Dosage: 250 MG EVERY 12 HOURS PER 7 DAYS
     Route: 048
     Dates: start: 201905, end: 201905
  2. METOTREXATO (418A) [Interacting]
     Active Substance: METHOTREXATE
     Indication: PSORIATIC ARTHROPATHY
     Dosage: 10 MG WEEKLY
     Route: 030
     Dates: start: 2016

REACTIONS (2)
  - Bone marrow failure [Fatal]
  - Drug interaction [Unknown]

NARRATIVE: CASE EVENT DATE: 20190601
